FAERS Safety Report 7077222-7 (Version None)
Quarter: 2010Q4

REPORT INFORMATION
  Report Type: 
  Country: None (occurrence: None)
  Receive Date: 20101101
  Receipt Date: 20101020
  Transmission Date: 20110411
  Serious: Yes (Hospitalization, Other)
  Sender: FDA-Public Use
  Company Number: US-ELI_LILLY_AND_COMPANY-US201010006884

PATIENT
  Sex: Male
  Weight: 96.145 kg

DRUGS (5)
  1. PRASUGREL HYDROCHLORIDE [Suspect]
     Indication: ACUTE CORONARY SYNDROME
     Dosage: 10 MG, DAILY (1/D)
     Dates: start: 20100310
  2. ASPIRIN [Concomitant]
     Dosage: 325 MG, DAILY (1/D)
     Dates: start: 20100311
  3. LISINOPRIL [Concomitant]
     Indication: MYOCARDIAL INFARCTION
     Dosage: 5 MG, DAILY (1/D)
     Route: 048
     Dates: start: 20100311
  4. METOPROLOL [Concomitant]
     Indication: MYOCARDIAL INFARCTION
     Dosage: 200 MG, 2/D
     Route: 048
     Dates: start: 20100312
  5. SIMVASTATIN [Concomitant]
     Dosage: 40 MG, DAILY (1/D)
     Route: 048
     Dates: start: 20100310

REACTIONS (1)
  - ANGIOPLASTY [None]
